FAERS Safety Report 5742577-X (Version None)
Quarter: 2008Q2

REPORT INFORMATION
  Report Type: 
  Country: None (occurrence: None)
  Receive Date: 20080515
  Receipt Date: 20080515
  Transmission Date: 20081010
  Serious: Yes (Death)
  Sender: FDA-Public Use
  Company Number: None

PATIENT
  Sex: Male

DRUGS (2)
  1. DURAGESIC-100 [Suspect]
     Indication: PAIN
     Dosage: 100 MCG 1 EVERY 3 DAYS
     Dates: start: 20071210
  2. DURAGESIC-100 [Suspect]
     Indication: PAIN
     Dosage: 100 MCG 1 EVERY 3 DAYS
     Dates: start: 20071216

REACTIONS (1)
  - CARDIAC FAILURE CONGESTIVE [None]
